FAERS Safety Report 9536059 (Version 1)
Quarter: 2013Q2

REPORT INFORMATION
  Report Type: Spontaneous
  Country: US (occurrence: None)
  Receive Date: 20130507
  Receipt Date: 20130507
  Transmission Date: 20140414
  Serious: Yes (Other)
  Sender: FDA-Public Use
  Company Number: PHEH2012US025593

PATIENT
  Age: 79 Year
  Sex: Female

DRUGS (1)
  1. AFINITOR (RAD) [Suspect]
     Indication: BREAST CANCER
     Route: 048

REACTIONS (4)
  - Dysphonia [None]
  - Malaise [None]
  - Upper respiratory tract infection [None]
  - Body temperature increased [None]
